FAERS Safety Report 15965849 (Version 2)
Quarter: 2019Q1

REPORT INFORMATION
  Report Type: Spontaneous
  Country: US (occurrence: US)
  Receive Date: 20190215
  Receipt Date: 20190304
  Transmission Date: 20190418
  Serious: No
  Sender: FDA-Public Use
  Company Number: US-PFIZER INC-2019061826

PATIENT
  Age: 54 Year
  Sex: Female
  Weight: 54.43 kg

DRUGS (2)
  1. EUCRISA [Suspect]
     Active Substance: CRISABOROLE
     Indication: HAIR GROWTH ABNORMAL
     Dosage: UNK, 2X/DAY (TOPICALLY TWICE DAILY TO THE LEFT ANTERIOR SCALP)
     Route: 061
     Dates: start: 201901
  2. EUCRISA [Suspect]
     Active Substance: CRISABOROLE
     Indication: ALOPECIA AREATA

REACTIONS (3)
  - Eye disorder [Unknown]
  - Product use in unapproved indication [Unknown]
  - Application site pain [Unknown]

NARRATIVE: CASE EVENT DATE: 201901
